FAERS Safety Report 25523016 (Version 1)
Quarter: 2025Q3

REPORT INFORMATION
  Report Type: Report from Study
  Country: GB (occurrence: GB)
  Receive Date: 20250707
  Receipt Date: 20250707
  Transmission Date: 20251021
  Serious: Yes (Hospitalization)
  Sender: ROCHE
  Company Number: GB-ROCHE-1702578

PATIENT
  Age: 55 Year
  Sex: Female

DRUGS (13)
  1. TOCILIZUMAB [Suspect]
     Active Substance: TOCILIZUMAB
     Indication: Rheumatoid arthritis
     Route: 058
     Dates: start: 20151117
  2. TOCILIZUMAB [Suspect]
     Active Substance: TOCILIZUMAB
     Indication: Still^s disease
     Route: 058
     Dates: start: 20151124
  3. TOCILIZUMAB [Suspect]
     Active Substance: TOCILIZUMAB
     Route: 042
     Dates: start: 201305
  4. METHOTREXATE [Concomitant]
     Active Substance: METHOTREXATE
  5. METHOTREXATE [Concomitant]
     Active Substance: METHOTREXATE
     Dosage: ETHOTREXATE?2.5MG 6 TABS 1 A WEEK
  6. IRON [Concomitant]
     Active Substance: IRON
  7. EVCAOL D3 [Concomitant]
  8. FUMARATE 210MG [Concomitant]
     Dosage: FUMARATE 210MG 1 A DAY
  9. FOLIC ACID [Concomitant]
     Active Substance: FOLIC ACID
     Dosage: FOLIC ACID 5MG 1 A
  10. AMITRIPTYLINE [Concomitant]
     Active Substance: AMITRIPTYLINE
  11. ATORVASTATIN [Concomitant]
     Active Substance: ATORVASTATIN
  12. MORPHINE [Concomitant]
     Active Substance: MORPHINE
     Dosage: MORPHINE 10MG 1 TAB EVERY 12HRS
  13. MIRABEGRON [Concomitant]
     Active Substance: MIRABEGRON
     Dosage: MIRABEGRON 50MG 1 DAILY

REACTIONS (14)
  - Asthenia [Unknown]
  - Malaise [Unknown]
  - Respiratory tract infection [Recovered/Resolved]
  - Headache [Unknown]
  - Cough [Unknown]
  - Sputum discoloured [Unknown]
  - Arthralgia [Recovered/Resolved]
  - Gastroenteritis [Recovered/Resolved]
  - Arthropathy [Unknown]
  - Infection [Unknown]
  - Off label use [Unknown]
  - Cataract [Unknown]
  - Wound [Unknown]
  - Pain [Unknown]

NARRATIVE: CASE EVENT DATE: 20160714
